FAERS Safety Report 10705002 (Version 1)
Quarter: 2015Q1

REPORT INFORMATION
  Report Type: Spontaneous
  Country: US (occurrence: None)
  Receive Date: 20150109
  Receipt Date: 20150109
  Transmission Date: 20150721
  Serious: Yes (Hospitalization, Disabling, Other)
  Sender: FDA-Public Use
  Company Number: None

PATIENT
  Age: 74 Year
  Sex: Female

DRUGS (1)
  1. LEVOFLOXACIN. [Suspect]
     Active Substance: LEVOFLOXACIN
     Indication: SINUSITIS
     Dosage: 1 DAILY MOUTH
     Route: 048
     Dates: start: 20141111, end: 20141119

REACTIONS (12)
  - Neck pain [None]
  - Epistaxis [None]
  - Pruritus [None]
  - Arthralgia [None]
  - Back pain [None]
  - Pollakiuria [None]
  - Bone pain [None]
  - Headache [None]
  - Musculoskeletal pain [None]
  - Pain in extremity [None]
  - Gait disturbance [None]
  - Tendon disorder [None]

NARRATIVE: CASE EVENT DATE: 20141111
